FAERS Safety Report 18698294 (Version 1)
Quarter: 2021Q1

REPORT INFORMATION
  Report Type: Spontaneous
  Country: US (occurrence: US)
  Receive Date: 20210105
  Receipt Date: 20210105
  Transmission Date: 20210419
  Serious: Yes (Hospitalization, Other)
  Sender: FDA-Public Use
  Company Number: US-ALKEM LABORATORIES LIMITED-US-ALKEM-2020-09269

PATIENT
  Age: 16 Year
  Sex: Female

DRUGS (3)
  1. MYCOPHENOLATE MOFETIL. [Suspect]
     Active Substance: MYCOPHENOLATE MOFETIL
     Indication: IMMUNOSUPPRESSANT DRUG THERAPY
     Dosage: UNK
     Route: 065
  2. TACROLIMUS. [Suspect]
     Active Substance: TACROLIMUS
     Indication: IMMUNOSUPPRESSANT DRUG THERAPY
     Dosage: UNK
     Route: 065
  3. PREDNISONE. [Suspect]
     Active Substance: PREDNISONE
     Indication: IMMUNOSUPPRESSANT DRUG THERAPY
     Dosage: UNK
     Route: 065

REACTIONS (12)
  - Polyarthritis [Recovered/Resolved]
  - Hyperammonaemic encephalopathy [Recovered/Resolved]
  - Sterile pyuria [Recovered/Resolved]
  - Ureaplasma infection [Recovered/Resolved]
  - Tubulointerstitial nephritis [Unknown]
  - Hypogammaglobulinaemia [Unknown]
  - Renal abscess [Unknown]
  - Pyelonephritis acute [Recovered/Resolved]
  - Arthritis [Recovered/Resolved]
  - Acute kidney injury [Unknown]
  - Complications of transplanted kidney [Unknown]
  - Systemic bacterial infection [Recovered/Resolved]
